FAERS Safety Report 9314688 (Version 2)
Quarter: 2013Q3

REPORT INFORMATION
  Report Type: Report from Study
  Country: GB (occurrence: GB)
  Receive Date: 20130529
  Receipt Date: 20130807
  Transmission Date: 20140515
  Serious: Yes (Death)
  Sender: FDA-Public Use
  Company Number: GB-ROCHE-1229201

PATIENT
  Age: 74 Year
  Sex: Male

DRUGS (2)
  1. RANIBIZUMAB [Suspect]
     Indication: PRODUCT USED FOR UNKNOWN INDICATION
     Dosage: LAST DOSE OF LUCENTIS PRIOR TO THE EVENT WAS TAKEN ON 23/APR/2012.
     Route: 050
     Dates: start: 20090612
  2. RANIBIZUMAB [Suspect]
     Dosage: LAST DOSE OF LUCENTIS PRIOR TO THE EVENT WAS TAKEN ON 23/APR/2012.
     Route: 050
     Dates: start: 20120423, end: 20120423

REACTIONS (1)
  - Prostate cancer [Fatal]
